FAERS Safety Report 5447842-1 (Version None)
Quarter: 2007Q3

REPORT INFORMATION
  Report Type: 
  Country: None (occurrence: None)
  Receive Date: 20070910
  Receipt Date: 20070830
  Transmission Date: 20080115
  Serious: Yes (Other)
  Sender: FDA-Public Use
  Company Number: US-PFIZER INC-2007072531

PATIENT
  Sex: Male
  Weight: 45.454 kg

DRUGS (6)
  1. AZITHROMYCIN [Suspect]
     Indication: EAR INFECTION
  2. AZITHROMYCIN [Suspect]
     Indication: SINUS CONGESTION
  3. CYPROHEPTADINE HCL [Concomitant]
  4. PREDNISONE [Concomitant]
  5. DECONGESTANT [Concomitant]
  6. ALL OTHER THERAPEUTIC PRODUCTS [Concomitant]
     Route: 055

REACTIONS (2)
  - PAIN IN EXTREMITY [None]
  - WEIGHT BEARING DIFFICULTY [None]
